FAERS Safety Report 9026767 (Version 1)
Quarter: 2013Q1

REPORT INFORMATION
  Report Type: Spontaneous
  Country: US (occurrence: US)
  Receive Date: 20130123
  Receipt Date: 20130123
  Transmission Date: 20140127
  Serious: Yes (Hospitalization)
  Sender: FDA-Public Use
  Company Number: US-BAYER-2013-008174

PATIENT
  Age: 25 Year
  Sex: Female
  Weight: 69.98 kg

DRUGS (5)
  1. OCELLA [Suspect]
     Indication: CONTRACEPTION
  2. AZITHROMYCIN [Concomitant]
     Dosage: 250 MG, UNK
     Route: 048
  3. METHYLPREDNISOLONE [Concomitant]
     Dosage: 4 MG, UNK
     Route: 048
  4. PROAIR HFA [Concomitant]
     Dosage: 90 MCG, UNK
     Route: 045
  5. PREDNISONE [Concomitant]

REACTIONS (2)
  - Pulmonary embolism [None]
  - Deep vein thrombosis [None]
